FAERS Safety Report 4606622-7 (Version None)
Quarter: 2005Q2

REPORT INFORMATION
  Report Type: 
  Country: None (occurrence: None)
  Receive Date: 20050223
  Receipt Date: 20040419
  Transmission Date: 20051028
  Serious: Yes (Other)
  Sender: FDA-Public Use
  Company Number: WAES  0404USA01822

PATIENT
  Age: 76 Year
  Sex: Male
  Weight: 78.0187 kg

DRUGS (7)
  1. ZOCOR [Suspect]
     Indication: BLOOD CHOLESTEROL INCREASED
     Dosage: 10 MG/DAILY/PO
     Route: 048
     Dates: start: 20030701, end: 20040304
  2. ZOCOR [Suspect]
     Indication: HYPERLIPIDAEMIA
     Dosage: 10 MG/DAILY/PO
     Route: 048
     Dates: start: 20030701, end: 20040304
  3. ZOCOR [Suspect]
     Indication: BLOOD CHOLESTEROL INCREASED
     Dosage: 10 MG/DAILY/PO
     Route: 048
     Dates: start: 20040405, end: 20040413
  4. ZOCOR [Suspect]
     Indication: HYPERLIPIDAEMIA
     Dosage: 10 MG/DAILY/PO
     Route: 048
     Dates: start: 20040405, end: 20040413
  5. HYDRODIURIL [Concomitant]
  6. PRINIVIL [Concomitant]
  7. SYNTHROID [Concomitant]

REACTIONS (6)
  - ABDOMINAL PAIN [None]
  - ANTINUCLEAR ANTIBODY POSITIVE [None]
  - ARTHRALGIA [None]
  - MUSCLE SPASMS [None]
  - MYALGIA [None]
  - RED BLOOD CELL SEDIMENTATION RATE INCREASED [None]
